FAERS Safety Report 8000446-9 (Version None)
Quarter: 2011Q4

REPORT INFORMATION
  Report Type: 
  Country: None (occurrence: None)
  Receive Date: 20111222
  Receipt Date: 20110623
  Transmission Date: 20120403
  Serious: Yes (Hospitalization)
  Sender: FDA-Public Use
  Company Number: US-BRISTOL-MYERS SQUIBB COMPANY-15852361

PATIENT
  Age: 73 Year
  Sex: Male
  Weight: 102 kg

DRUGS (5)
  1. FISH OIL [Concomitant]
  2. RAMIPRIL [Concomitant]
  3. THYROID TAB [Concomitant]
  4. PRAVASTATIN SODIUM [Suspect]
     Indication: BLOOD CHOLESTEROL INCREASED
     Dosage: 1DF = 2TABS AT BEDTIME 40TABS RX NO 5035143B
     Route: 048
  5. WARFARIN SODIUM [Concomitant]
     Indication: COAGULOPATHY

REACTIONS (1)
  - ARTHRALGIA [None]
